FAERS Safety Report 17778410 (Version 1)
Quarter: 2020Q2

REPORT INFORMATION
  Report Type: Spontaneous
  Country: US (occurrence: US)
  Receive Date: 20200513
  Receipt Date: 20200513
  Transmission Date: 20200714
  Serious: No
  Sender: FDA-Public Use
  Company Number: US-CIPLA LTD.-2020US02199

PATIENT

DRUGS (2)
  1. PREGABALIN. [Suspect]
     Active Substance: PREGABALIN
     Indication: NEUROPATHY PERIPHERAL
     Dosage: 150 MILLIGRAM, BID (TWICE A DAY)
     Route: 048
     Dates: start: 20200228
  2. PREGABALIN. [Suspect]
     Active Substance: PREGABALIN
     Indication: SPINAL DISORDER

REACTIONS (3)
  - Paraesthesia [Not Recovered/Not Resolved]
  - Therapeutic product effect incomplete [Not Recovered/Not Resolved]
  - Product substitution issue [Unknown]
